FAERS Safety Report 9060522 (Version 1)
Quarter: 2013Q1

REPORT INFORMATION
  Report Type: Other
  Country: SE (occurrence: SE)
  Receive Date: 20130212
  Receipt Date: 20130212
  Transmission Date: 20140127
  Serious: Yes (Other)
  Sender: FDA-Public Use
  Company Number: SE-NICOBRDEVP-2013-02128

PATIENT
  Age: 48 Year
  Sex: Male

DRUGS (1)
  1. CIPROFLOXACIN HYDROCHLORIDE [Suspect]
     Indication: URINARY TRACT INFECTION
     Dosage: 500 MG, UNKNOWN FOR 10 DAYS
     Route: 065

REACTIONS (15)
  - Anxiety [Recovering/Resolving]
  - Chest discomfort [Unknown]
  - Diarrhoea [Unknown]
  - Dry mouth [Not Recovered/Not Resolved]
  - Insomnia [Not Recovered/Not Resolved]
  - Nausea [Not Recovered/Not Resolved]
  - Nightmare [Unknown]
  - Palpitations [Unknown]
  - Hypoaesthesia [Not Recovered/Not Resolved]
  - Hyperhidrosis [Unknown]
  - Dysgeusia [Unknown]
  - Paraesthesia [Not Recovered/Not Resolved]
  - Tremor [Not Recovered/Not Resolved]
  - Weight decreased [Unknown]
  - Muscular weakness [Unknown]
